FAERS Safety Report 24534273 (Version 1)
Quarter: 2024Q4

REPORT INFORMATION
  Report Type: Spontaneous
  Country: BE (occurrence: BE)
  Receive Date: 20241022
  Receipt Date: 20241022
  Transmission Date: 20250115
  Serious: Yes (Other)
  Sender: SANDOZ
  Company Number: BE-GLAXOSMITHKLINE-BE2019161643

PATIENT
  Sex: Female

DRUGS (1)
  1. DICLOFENAC DIETHYLAMINE [Suspect]
     Active Substance: DICLOFENAC DIETHYLAMINE
     Indication: Product used for unknown indication
     Dosage: 1 DF, QD
     Route: 003

REACTIONS (2)
  - Melaena [Unknown]
  - Epistaxis [Unknown]
